FAERS Safety Report 10429751 (Version 1)
Quarter: 2014Q3

REPORT INFORMATION
  Report Type: Spontaneous
  Country: US (occurrence: None)
  Receive Date: 20140902
  Receipt Date: 20140902
  Transmission Date: 20150326
  Serious: Yes (Hospitalization)
  Sender: FDA-Public Use
  Company Number: None

PATIENT
  Age: 58 Year
  Sex: Female

DRUGS (10)
  1. FISH OIL [Concomitant]
     Active Substance: FISH OIL
  2. REMIFEMIN [Concomitant]
  3. GABAPENTIN. [Concomitant]
     Active Substance: GABAPENTIN
  4. ALENDRONATE SODIUM. [Suspect]
     Active Substance: ALENDRONATE SODIUM
     Indication: OSTEOPOROSIS
     Dates: start: 20140818, end: 20140818
  5. CALCIUM [Concomitant]
     Active Substance: CALCIUM
  6. LEVOCETIRIZINE [Concomitant]
     Active Substance: LEVOCETIRIZINE
  7. D3-1800 [Concomitant]
  8. FIBER CAPSULES [Concomitant]
  9. PROBIOTICS [Concomitant]
     Active Substance: PROBIOTICS NOS
  10. LEVOTHYROXINE [Concomitant]
     Active Substance: LEVOTHYROXINE

REACTIONS (4)
  - Chest pain [None]
  - Pain in extremity [None]
  - Musculoskeletal pain [None]
  - Pain [None]

NARRATIVE: CASE EVENT DATE: 20140819
